FAERS Safety Report 4445335-1 (Version None)
Quarter: 2004Q3

REPORT INFORMATION
  Report Type: 
  Country: None (occurrence: None)
  Receive Date: 20040903
  Receipt Date: 20040819
  Transmission Date: 20050211
  Serious: Yes (Hospitalization)
  Sender: FDA-Public Use
  Company Number: 04P-167-0271152-00

PATIENT
  Age: 45 Year
  Sex: Male
  Weight: 82 kg

DRUGS (9)
  1. HUMIRA [Suspect]
     Indication: RHEUMATOID ARTHRITIS
     Dosage: 40 MG, 1 IN 2 WK, SUBCUTANEOUS;
     Route: 058
     Dates: start: 20030501, end: 20031001
  2. HUMIRA [Suspect]
     Indication: RHEUMATOID ARTHRITIS
     Dosage: 40 MG, 1 IN 2 WK, SUBCUTANEOUS;
     Route: 058
     Dates: start: 20040401
  3. RANITIDINE HYDROCHLORIDE [Concomitant]
  4. ALENDRONATE SODIUM [Concomitant]
  5. CALCIUM CARBONATE [Concomitant]
  6. MORPHINE SULFATE [Concomitant]
  7. DOSULEPIN [Concomitant]
  8. CITALOPRAM HYDROBROMIDE [Concomitant]
  9. IBUPROFEN [Concomitant]

REACTIONS (1)
  - IMMOBILE [None]
